FAERS Safety Report 8987211 (Version 2)
Quarter: 2012Q4

REPORT INFORMATION
  Report Type: 
  Country: IT (occurrence: IT)
  Receive Date: 20121227
  Receipt Date: 20121228
  Transmission Date: 20130627
  Serious: Yes (Other)
  Sender: FDA-Public Use
  Company Number: IT-009507513-1212ITA009435

PATIENT
  Age: 46 Year
  Sex: Male
  Weight: 104 kg

DRUGS (4)
  1. PEGINTERFERON ALFA-2B [Suspect]
     Indication: CHRONIC HEPATITIS C
     Dosage: 1.5 Microgram per kilogram, qw
     Route: 058
  2. PEGINTERFERON ALFA-2B [Suspect]
     Dosage: 1.2 Microgram per kilogram, qw
     Route: 058
  3. RIBAVIRIN [Suspect]
     Indication: CHRONIC HEPATITIS C
     Dosage: 1200 mg, qd
     Route: 048
  4. CITALOPRAM [Concomitant]
     Indication: DEPRESSION
     Dosage: 20 mg, qd

REACTIONS (1)
  - Alopecia universalis [Not Recovered/Not Resolved]
